FAERS Safety Report 5102852-9 (Version None)
Quarter: 2006Q3

REPORT INFORMATION
  Report Type: 
  Country: None (occurrence: None)
  Receive Date: 20060907
  Receipt Date: 20060817
  Transmission Date: 20061208
  Serious: No
  Sender: FDA-Public Use
  Company Number: BE200606000581

PATIENT
  Age: 34 Year
  Sex: Female

DRUGS (3)
  1. CYMBALTA [Suspect]
     Indication: DEPRESSION
     Dosage: 60 MG, DAILY (1/D), ORAL
     Route: 048
     Dates: start: 20060419
  2. REMERON [Concomitant]
  3. STILNOCT (ZOLPIDEM TARTRATE) [Concomitant]

REACTIONS (2)
  - HEPATIC STEATOSIS [None]
  - URTICARIA [None]
